APPROVED DRUG PRODUCT: HYDROCODONE BITARTRATE AND ACETAMINOPHEN
Active Ingredient: ACETAMINOPHEN; HYDROCODONE BITARTRATE
Strength: 300MG;10MG
Dosage Form/Route: TABLET;ORAL
Application: A206718 | Product #003 | TE Code: AA
Applicant: SPECGX LLC
Approved: Mar 31, 2017 | RLD: No | RS: Yes | Type: RX